FAERS Safety Report 7320794-5 (Version None)
Quarter: 2011Q1

REPORT INFORMATION
  Report Type: 
  Country: None (occurrence: None)
  Receive Date: 20110228
  Receipt Date: 20110221
  Transmission Date: 20110831
  Serious: No
  Sender: FDA-Public Use
  Company Number: GB-ROCHE-756338

PATIENT
  Sex: Male
  Weight: 101 kg

DRUGS (5)
  1. XELODA [Suspect]
     Dosage: CYCLE 3 AT 75% DOSE
     Route: 048
     Dates: start: 20110208
  2. LOPERAMIDE [Concomitant]
     Indication: DIARRHOEA
     Route: 048
     Dates: start: 20101214
  3. XELODA [Suspect]
     Indication: COLON CANCER
     Route: 048
     Dates: start: 20101214
  4. XELODA [Suspect]
     Dosage: CYCLE 2 AT 75% DOSE
     Route: 048
     Dates: start: 20110118
  5. DOMPERIDONE [Concomitant]
     Indication: NAUSEA
     Route: 048
     Dates: start: 20101214

REACTIONS (1)
  - ALANINE AMINOTRANSFERASE INCREASED [None]
